FAERS Safety Report 14765406 (Version 1)
Quarter: 2018Q2

REPORT INFORMATION
  Report Type: Spontaneous
  Country: US (occurrence: US)
  Receive Date: 20180416
  Receipt Date: 20180416
  Transmission Date: 20180711
  Serious: No
  Sender: FDA-Public Use
  Company Number: US-GALDERMA-US18003590

PATIENT
  Age: 42 Year
  Sex: Female

DRUGS (4)
  1. PROACTIV MD ADAPALENE ACNE TREATMENT [Suspect]
     Active Substance: ADAPALENE
     Indication: ACNE
     Dosage: 0.1%
     Route: 061
     Dates: start: 20171004, end: 20171012
  2. PROACTIV GENTLE FORMULA CLARIFYING NIGHT LOTION [Concomitant]
     Indication: ACNE
     Route: 061
     Dates: start: 20171004, end: 20171012
  3. PROACTIV GENTLE FORMULA CLARIFYING TONER [Concomitant]
     Indication: ACNE
     Route: 061
     Dates: start: 20171004, end: 20171012
  4. PROACTIV GENTLE FORMULA CLARIFYING DAY LOTION [Concomitant]
     Indication: ACNE
     Route: 061
     Dates: start: 20171004, end: 20171012

REACTIONS (3)
  - Skin wrinkling [Recovering/Resolving]
  - Dry skin [Recovering/Resolving]
  - Skin hypopigmentation [Recovering/Resolving]

NARRATIVE: CASE EVENT DATE: 20171010
